FAERS Safety Report 4965512-0 (Version None)
Quarter: 2006Q2

REPORT INFORMATION
  Report Type: 
  Country: None (occurrence: None)
  Receive Date: 20060406
  Receipt Date: 20051020
  Transmission Date: 20061013
  Serious: Yes (Death, Hospitalization)
  Sender: FDA-Public Use
  Company Number: US-MERCK-0510USA08338

PATIENT
  Age: 65 Year
  Sex: Male
  Weight: 84 kg

DRUGS (13)
  1. VIOXX [Suspect]
     Indication: OSTEOARTHRITIS
     Route: 048
     Dates: start: 20011001, end: 20030101
  2. VIOXX [Suspect]
     Route: 048
     Dates: start: 20011001, end: 20030101
  3. VIOXX [Suspect]
     Route: 048
     Dates: start: 20011001, end: 20030101
  4. GLYBURIDE [Concomitant]
     Route: 065
  5. ZOCOR [Concomitant]
     Route: 065
  6. COZAAR [Concomitant]
     Route: 065
  7. ALBUTEROL [Concomitant]
     Route: 065
  8. CEPHALEXIN [Concomitant]
     Route: 065
  9. BECONASE [Concomitant]
     Route: 065
  10. NITROGLYCERIN [Concomitant]
     Route: 065
  11. MICRONASE [Concomitant]
     Route: 065
  12. PRAZOSIN [Concomitant]
     Route: 065
  13. PLAVIX [Concomitant]
     Route: 065

REACTIONS (9)
  - ACUTE MYOCARDIAL INFARCTION [None]
  - ANAEMIA [None]
  - CORONARY ARTERY DISEASE [None]
  - HEPATOMEGALY [None]
  - MITRAL VALVE INCOMPETENCE [None]
  - PETECHIAE [None]
  - PRESCRIBED OVERDOSE [None]
  - PUPIL FIXED [None]
  - SKIN LESION [None]
